FAERS Safety Report 13937323 (Version 1)
Quarter: 2017Q3

REPORT INFORMATION
  Report Type: Spontaneous
  Country: BE (occurrence: BE)
  Receive Date: 20170905
  Receipt Date: 20170905
  Transmission Date: 20171127
  Serious: Yes (Hospitalization, Other)
  Sender: FDA-Public Use
  Company Number: BE-ASTRAZENECA-2017SE88870

PATIENT
  Sex: Female

DRUGS (7)
  1. NEXIAM [Suspect]
     Active Substance: ESOMEPRAZOLE
     Indication: ULCER
     Route: 048
  2. PANTOZOL [Suspect]
     Active Substance: PANTOPRAZOLE SODIUM
     Route: 065
  3. NEXIAM [Suspect]
     Active Substance: ESOMEPRAZOLE
     Indication: ULCER
     Route: 048
  4. NEXIAM [Suspect]
     Active Substance: ESOMEPRAZOLE
     Indication: ULCER
     Dosage: 40MG IN THE MORNING AND 20MG IN THE EVENING
     Route: 048
  5. NEXIAM [Suspect]
     Active Substance: ESOMEPRAZOLE
     Indication: GASTROOESOPHAGEAL REFLUX DISEASE
     Route: 048
  6. NEXIAM [Suspect]
     Active Substance: ESOMEPRAZOLE
     Indication: GASTROOESOPHAGEAL REFLUX DISEASE
     Dosage: 40MG IN THE MORNING AND 20MG IN THE EVENING
     Route: 048
  7. NEXIAM [Suspect]
     Active Substance: ESOMEPRAZOLE
     Indication: GASTROOESOPHAGEAL REFLUX DISEASE
     Route: 048

REACTIONS (11)
  - Pharyngeal oedema [Unknown]
  - Overdose [Unknown]
  - Aerophagia [Unknown]
  - Vomiting [Unknown]
  - Off label use [Unknown]
  - Weight decreased [Unknown]
  - Dysphagia [Unknown]
  - Nausea [Unknown]
  - Drug hypersensitivity [Unknown]
  - Dyspepsia [Unknown]
  - Eating disorder [Unknown]
